FAERS Safety Report 7507144-6 (Version None)
Quarter: 2011Q2

REPORT INFORMATION
  Report Type: 
  Country: None (occurrence: None)
  Receive Date: 20110526
  Receipt Date: 20110511
  Transmission Date: 20111010
  Serious: Yes (Other)
  Sender: FDA-Public Use
  Company Number: US-BAYER-2011-042005

PATIENT
  Age: 65 Year
  Sex: Female
  Weight: 68 kg

DRUGS (5)
  1. RISPERDAL [Concomitant]
     Dosage: UNK
     Route: 048
  2. LITHOBID [Concomitant]
     Dosage: UNK
     Route: 048
  3. ANTIACID [Concomitant]
     Dosage: UNK
     Route: 048
  4. ALEVE (CAPLET) [Suspect]
     Indication: ARTHRITIS
     Dosage: 3-4 DF /DAILY
     Route: 048
  5. DIOVAN [Concomitant]
     Dosage: UNK
     Route: 048

REACTIONS (3)
  - FAECES DISCOLOURED [None]
  - CONSTIPATION [None]
  - RECTAL HAEMORRHAGE [None]
